FAERS Safety Report 17753135 (Version 2)
Quarter: 2020Q2

REPORT INFORMATION
  Report Type: Spontaneous
  Country: US (occurrence: US)
  Receive Date: 20200506
  Receipt Date: 20200528
  Transmission Date: 20200714
  Serious: Yes (Hospitalization)
  Sender: FDA-Public Use
  Company Number: US-UCBSA-2020006044

PATIENT
  Sex: Female
  Weight: 91 kg

DRUGS (1)
  1. CIMZIA [Suspect]
     Active Substance: CERTOLIZUMAB PEGOL
     Indication: RHEUMATOID ARTHRITIS
     Dosage: 200 MILLIGRAM, EV 2 WEEKS(QOW)
     Route: 058
     Dates: start: 20171116

REACTIONS (5)
  - Injection site pain [Unknown]
  - Injection site haemorrhage [Unknown]
  - Incorrect dose administered [Unknown]
  - Needle issue [Unknown]
  - Hospitalisation [Unknown]
